FAERS Safety Report 22591360 (Version 3)
Quarter: 2023Q4

REPORT INFORMATION
  Report Type: Report from Study
  Country: FR (occurrence: FR)
  Receive Date: 20230612
  Receipt Date: 20231218
  Transmission Date: 20240110
  Serious: Yes (Life-Threatening)
  Sender: FDA-Public Use
  Company Number: FR-002147023-NVSC2023FR132787

PATIENT
  Age: 75 Year
  Sex: Male
  Weight: 80 kg

DRUGS (3)
  1. BEOVU [Suspect]
     Active Substance: BROLUCIZUMAB-DBLL
     Indication: Neovascular age-related macular degeneration
     Dosage: UNK (RIGHT EYE)
     Route: 031
     Dates: start: 20220912, end: 20220912
  2. BEOVU [Suspect]
     Active Substance: BROLUCIZUMAB-DBLL
     Dosage: UNK (X1)
     Route: 031
     Dates: start: 20230120, end: 20230120
  3. BEOVU [Suspect]
     Active Substance: BROLUCIZUMAB-DBLL
     Dosage: UNK (X1) (RIGHT EYE)
     Route: 031
     Dates: start: 20230317, end: 20230317

REACTIONS (1)
  - Myocardial infarction [Recovering/Resolving]

NARRATIVE: CASE EVENT DATE: 20230408
